FAERS Safety Report 8028695-4 (Version None)
Quarter: 2012Q1

REPORT INFORMATION
  Report Type: 
  Country: None (occurrence: None)
  Receive Date: 20120106
  Receipt Date: 20111230
  Transmission Date: 20120608
  Serious: Yes (Hospitalization)
  Sender: FDA-Public Use
  Company Number: US-ABBOTT-11P-163-0882029-00

PATIENT
  Sex: Male
  Weight: 71.278 kg

DRUGS (1)
  1. HUMIRA [Suspect]
     Indication: CROHN'S DISEASE
     Route: 058

REACTIONS (8)
  - LUNG INFECTION PSEUDOMONAL [None]
  - RESPIRATORY MONILIASIS [None]
  - LUNG INFILTRATION [None]
  - PNEUMONIA [None]
  - CHRONIC OBSTRUCTIVE PULMONARY DISEASE [None]
  - DYSPNOEA [None]
  - PULMONARY FUNCTION TEST ABNORMAL [None]
  - LUNG INFECTION [None]
